FAERS Safety Report 7674776-4 (Version None)
Quarter: 2011Q3

REPORT INFORMATION
  Report Type: 
  Country: None (occurrence: None)
  Receive Date: 20110810
  Receipt Date: 20110802
  Transmission Date: 20111222
  Serious: Yes (Hospitalization)
  Sender: FDA-Public Use
  Company Number: CH-GLAXOSMITHKLINE-B0730828A

PATIENT
  Sex: Male
  Weight: 60 kg

DRUGS (1)
  1. PAROXETINE HCL [Suspect]
     Indication: PRODUCT USED FOR UNKNOWN INDICATION
     Dosage: 20MG PER DAY
     Route: 048
     Dates: start: 20040601

REACTIONS (5)
  - MALNUTRITION [None]
  - UNDERWEIGHT [None]
  - COLITIS [None]
  - COLITIS MICROSCOPIC [None]
  - DIARRHOEA [None]
